FAERS Safety Report 4458556-9 (Version None)
Quarter: 2004Q3

REPORT INFORMATION
  Report Type: 
  Country: None (occurrence: None)
  Receive Date: 20040917
  Receipt Date: 20040113
  Transmission Date: 20050211
  Serious: Yes (Other)
  Sender: FDA-Public Use
  Company Number: US-JNJFOC-20031100548

PATIENT
  Age: 39 Year
  Sex: Female
  Weight: 49.8957 kg

DRUGS (11)
  1. TOPAMAX [Suspect]
     Indication: BIPOLAR II DISORDER
     Dosage: 300 MG, 2 IN 1 DAY, ORAL; 225 MG, IN 1 DAY, ORAL;IN 1 DAY, ORAL
     Route: 048
     Dates: end: 20020101
  2. TOPAMAX [Suspect]
     Indication: BIPOLAR II DISORDER
     Dosage: 300 MG, 2 IN 1 DAY, ORAL; 225 MG, IN 1 DAY, ORAL;IN 1 DAY, ORAL
     Route: 048
     Dates: start: 20021031, end: 20030801
  3. TOPAMAX [Suspect]
     Indication: BIPOLAR II DISORDER
     Dosage: 300 MG, 2 IN 1 DAY, ORAL; 225 MG, IN 1 DAY, ORAL;IN 1 DAY, ORAL
     Route: 048
     Dates: start: 20010329
  4. AMITRIPTYLINE (AMITRIPTYLINE) [Suspect]
     Indication: DRUG USE FOR UNKNOWN INDICATION
  5. ALLEGRA [Concomitant]
  6. PROSED (PROSED;DS) [Concomitant]
  7. ELMIRON [Concomitant]
  8. DITROPAN XL [Concomitant]
  9. NEURONTIN [Concomitant]
  10. TRAZODONE HCL [Concomitant]
  11. LITHIUM [Suspect]

REACTIONS (18)
  - BIPOLAR DISORDER [None]
  - BLADDER DISCOMFORT [None]
  - CALCULUS BLADDER [None]
  - CYSTITIS INTERSTITIAL [None]
  - DYSURIA [None]
  - HAEMATURIA [None]
  - MICTURITION DISORDER [None]
  - NAUSEA [None]
  - NEPHROLITHIASIS [None]
  - NOCTURIA [None]
  - PNEUMONIA [None]
  - PSYCHOMOTOR HYPERACTIVITY [None]
  - THERAPEUTIC AGENT TOXICITY [None]
  - UNEXPECTED THERAPEUTIC DRUG EFFECT [None]
  - URINARY TRACT DISORDER [None]
  - URINARY TRACT INFECTION [None]
  - URINE ANALYSIS ABNORMAL [None]
  - VOMITING [None]
